FAERS Safety Report 19503689 (Version 1)
Quarter: 2021Q3

REPORT INFORMATION
  Report Type: Not Available
  Country: CO (occurrence: CO)
  Receive Date: 20210707
  Receipt Date: 20210707
  Transmission Date: 20211014
  Serious: Yes (Death, Hospitalization, Other)
  Sender: FDA-Public Use
  Company Number: CO-TEIKOKU PHARMA USA-TPU2021-00659

PATIENT
  Sex: Female

DRUGS (1)
  1. VERSATIS [Suspect]
     Active Substance: LIDOCAINE
     Indication: PAIN
     Route: 061
     Dates: start: 20180221

REACTIONS (3)
  - Myocardial infarction [Fatal]
  - Inappropriate schedule of product administration [Unknown]
  - Cardiac disorder [Fatal]

NARRATIVE: CASE EVENT DATE: 202106
